FAERS Safety Report 24366434 (Version 1)
Quarter: 2024Q3

REPORT INFORMATION
  Report Type: Spontaneous
  Country: US (occurrence: None)
  Receive Date: 20240925
  Receipt Date: 20240925
  Transmission Date: 20241016
  Serious: No
  Sender: Public
  Company Number: None

PATIENT
  Age: 84 Year
  Sex: Female
  Weight: 49.5 kg

DRUGS (14)
  1. GABAPENTIN [Suspect]
     Active Substance: GABAPENTIN
     Indication: Herpes zoster
     Dosage: FREQUENCY : AT BEDTIME;?
     Route: 048
  2. GABAPENTIN [Suspect]
     Active Substance: GABAPENTIN
     Indication: Post herpetic neuralgia
  3. VALACYCLOVIR [Concomitant]
     Active Substance: VALACYCLOVIR HYDROCHLORIDE
  4. SYNTHROID [Concomitant]
     Active Substance: LEVOTHYROXINE SODIUM
  5. RYTARY [Concomitant]
     Active Substance: CARBIDOPA\LEVODOPA
  6. MIDODRINE [Concomitant]
     Active Substance: MIDODRINE
  7. LAMOTRIGINE [Concomitant]
     Active Substance: LAMOTRIGINE
  8. CITALOPRAM [Concomitant]
     Active Substance: CITALOPRAM
  9. SEVELAMER [Concomitant]
     Active Substance: SEVELAMER
  10. CINACALCET [Concomitant]
     Active Substance: CINACALCET
  11. MIRTAZAPINE [Concomitant]
     Active Substance: MIRTAZAPINE
  12. SIMVASTATIN [Concomitant]
     Active Substance: SIMVASTATIN
  13. ACETAMINOPHEN [Concomitant]
     Active Substance: ACETAMINOPHEN
  14. ONDANSETRON [Concomitant]
     Active Substance: ONDANSETRON

REACTIONS (8)
  - Brain fog [None]
  - Dizziness [None]
  - Vertigo [None]
  - Cerebrovascular accident [None]
  - Nausea [None]
  - Confusional state [None]
  - Dysarthria [None]
  - Dialysis [None]

NARRATIVE: CASE EVENT DATE: 20240722
